FAERS Safety Report 21227167 (Version 1)
Quarter: 2022Q3

REPORT INFORMATION
  Report Type: Report from Study
  Country: US (occurrence: US)
  Receive Date: 20220818
  Receipt Date: 20220818
  Transmission Date: 20221026
  Serious: Yes (Other)
  Sender: FDA-Public Use
  Company Number: US-JAZZ-2022-US-026103

PATIENT
  Age: 30 Year
  Sex: Female

DRUGS (1)
  1. SUNOSI [Suspect]
     Active Substance: SOLRIAMFETOL
     Indication: Narcolepsy
     Dosage: UNK UNK, QD
     Route: 048

REACTIONS (3)
  - Angina pectoris [Unknown]
  - Heart rate increased [Unknown]
  - Somnolence [Unknown]
